FAERS Safety Report 8065663 (Version 2)
Quarter: 2013Q1

REPORT INFORMATION
  Report Type: Report from Study
  Country: FR (occurrence: FR)
  Receive Date: 20110802
  Receipt Date: 20130225
  Transmission Date: 20140127
  Serious: Yes (Hospitalization)
  Sender: FDA-Public Use
  Company Number: FR-ROCHE-793241

PATIENT
  Age: 74 Year
  Sex: Female
  Weight: 66 kg

DRUGS (16)
  1. ROACTEMRA [Suspect]
     Indication: RHEUMATOID ARTHRITIS
     Route: 042
     Dates: start: 20110104, end: 20110427
  2. ACUPAN [Suspect]
     Indication: PRODUCT USED FOR UNKNOWN INDICATION
     Dosage: START DATE: 25 MAY 2011, DOSE: 4 AMP, FREQUENCY: DAILY
     Route: 065
  3. ARAVA [Concomitant]
     Route: 048
  4. CORTANCYL [Concomitant]
     Indication: RHEUMATOID ARTHRITIS
     Route: 065
     Dates: start: 200405
  5. LEVOTHYROX [Concomitant]
     Route: 065
  6. CRESTOR [Concomitant]
     Route: 065
  7. DOLIPRANE [Concomitant]
     Route: 065
  8. LYRICA [Concomitant]
     Route: 065
  9. MONURIL [Concomitant]
     Dosage: 1 DOSE
     Route: 065
  10. FIXICAL [Concomitant]
     Route: 065
  11. ABUFENE [Concomitant]
     Route: 065
  12. HYTACAND [Concomitant]
     Route: 065
  13. RIVOTRIL [Concomitant]
     Route: 065
  14. INEXIUM [Concomitant]
     Route: 065
  15. METEOSPASMYL [Concomitant]
     Route: 065
  16. MONO-TILDIEM [Concomitant]
     Route: 065

REACTIONS (8)
  - Dyspnoea [Not Recovered/Not Resolved]
  - Venous thrombosis [Recovered/Resolved]
  - Hyponatraemia [Recovered/Resolved]
  - Dyspnoea exertional [Recovered/Resolved]
  - Lumbar spinal stenosis [Recovered/Resolved]
  - Intervertebral disc protrusion [Recovered/Resolved]
  - Cholecystitis acute [Recovered/Resolved]
  - Cystitis [Recovered/Resolved]
